FAERS Safety Report 5434323-4 (Version None)
Quarter: 2007Q3

REPORT INFORMATION
  Report Type: 
  Country: None (occurrence: None)
  Receive Date: 20070829
  Receipt Date: 20070816
  Transmission Date: 20080115
  Serious: Yes (Death, Hospitalization)
  Sender: FDA-Public Use
  Company Number: 160135ISR

PATIENT
  Age: 65 Year
  Sex: Female

DRUGS (1)
  1. DICLOFENAC [Suspect]
     Dosage: 150 MG (50 MG, 3 IN 1 D)

REACTIONS (8)
  - BLOOD PARATHYROID HORMONE INCREASED [None]
  - HYPERKALAEMIA [None]
  - HYPOALDOSTERONISM [None]
  - HYPONATRAEMIA [None]
  - KIDNEY ENLARGEMENT [None]
  - METABOLIC ACIDOSIS [None]
  - NEPHROLITHIASIS [None]
  - PNEUMONIA [None]
